FAERS Safety Report 5392933-7 (Version None)
Quarter: 2007Q3

REPORT INFORMATION
  Report Type: 
  Country: None (occurrence: None)
  Receive Date: 20070718
  Receipt Date: 20070703
  Transmission Date: 20080115
  Serious: Yes (Death)
  Sender: FDA-Public Use
  Company Number: TNZFR200700045

PATIENT
  Age: 65 Year
  Sex: Female

DRUGS (1)
  1. INNOHEP [Suspect]
     Indication: THROMBOSIS PROPHYLAXIS
     Dosage: 4500 IU, SUBCUTANEOUS
     Route: 058
     Dates: start: 20070101, end: 20070101

REACTIONS (6)
  - CARDIAC ARREST [None]
  - DENTAL CARIES [None]
  - DISLOCATION OF JOINT PROSTHESIS [None]
  - MOBILITY DECREASED [None]
  - PULMONARY EMBOLISM [None]
  - SURGICAL PROCEDURE REPEATED [None]
